FAERS Safety Report 23999796 (Version 1)
Quarter: 2024Q2

REPORT INFORMATION
  Report Type: Spontaneous
  Country: GB (occurrence: GB)
  Receive Date: 20240621
  Receipt Date: 20240621
  Transmission Date: 20240716
  Serious: Yes (Hospitalization, Other)
  Sender: FDA-Public Use
  Company Number: GB-MHRA-TPP44579373C9124481YC1718104671928

PATIENT
  Age: 38 Year
  Sex: Female

DRUGS (1)
  1. NAPROXEN [Suspect]
     Active Substance: NAPROXEN
     Indication: Ill-defined disorder
     Dates: start: 20240611

REACTIONS (1)
  - Amnestic disorder [Recovered/Resolved]

NARRATIVE: CASE EVENT DATE: 20240611
